FAERS Safety Report 5926274-3 (Version None)
Quarter: 2008Q4

REPORT INFORMATION
  Report Type: 
  Country: None (occurrence: None)
  Receive Date: 20081022
  Receipt Date: 20081010
  Transmission Date: 20090506
  Serious: Yes (Other)
  Sender: FDA-Public Use
  Company Number: BR-BAYER-200819210LA

PATIENT
  Age: 47 Year
  Sex: Female

DRUGS (2)
  1. BETAFERON [Suspect]
     Indication: MULTIPLE SCLEROSIS
     Route: 058
     Dates: start: 20060801, end: 20080201
  2. PROPYLTHIOURACIL [Concomitant]
     Indication: HYPERTHYROIDISM
     Route: 048
     Dates: start: 19740101, end: 20060101

REACTIONS (14)
  - ERYTHROPENIA [None]
  - FATIGUE [None]
  - GASTROINTESTINAL MOTILITY DISORDER [None]
  - HEADACHE [None]
  - LEUKAEMIA [None]
  - LEUKOPENIA [None]
  - MULTIPLE SCLEROSIS [None]
  - NEPHROLITHIASIS [None]
  - PAIN [None]
  - PROTEINURIA [None]
  - THROMBOCYTOPENIA [None]
  - URINARY INCONTINENCE [None]
  - VISUAL IMPAIRMENT [None]
  - WEIGHT DECREASED [None]
